FAERS Safety Report 7390445-2 (Version None)
Quarter: 2011Q2

REPORT INFORMATION
  Report Type: 
  Country: None (occurrence: None)
  Receive Date: 20110401
  Receipt Date: 20110324
  Transmission Date: 20111010
  Serious: Yes (Hospitalization)
  Sender: FDA-Public Use
  Company Number: JP-MERCK-1102USA02547

PATIENT
  Age: 33 Year
  Sex: Female
  Weight: 43 kg

DRUGS (22)
  1. NEUROTROPIN [Concomitant]
     Indication: TONSILLITIS
     Route: 048
     Dates: start: 20080817, end: 20080822
  2. NEUROTROPIN [Concomitant]
     Indication: DEAFNESS
     Route: 048
     Dates: start: 20080817, end: 20080822
  3. MIYA BM [Concomitant]
     Indication: TONSILLITIS
     Route: 048
     Dates: start: 20080817, end: 20080822
  4. LOXONIN [Concomitant]
     Indication: TONSILLITIS
     Route: 048
     Dates: start: 20080817, end: 20080822
  5. DEPAS [Concomitant]
     Indication: TONSILLITIS
     Route: 048
     Dates: start: 20080817, end: 20080822
  6. MEIACT [Concomitant]
     Indication: DEAFNESS
     Route: 048
     Dates: start: 20080717, end: 20080827
  7. METHISTA [Concomitant]
     Indication: TONSILLITIS
     Route: 048
     Dates: start: 20080717, end: 20080827
  8. PEPCID RPD [Suspect]
     Indication: TONSILLITIS
     Route: 048
     Dates: start: 20080817
  9. PEPCID RPD [Suspect]
     Indication: DEAFNESS
     Route: 048
     Dates: start: 20080817
  10. MIYA BM [Concomitant]
     Indication: DEAFNESS
     Route: 048
     Dates: start: 20080817, end: 20080822
  11. MEIACT [Concomitant]
     Indication: TONSILLITIS
     Route: 048
     Dates: start: 20080717, end: 20080827
  12. DEPAS [Concomitant]
     Indication: DEAFNESS
     Route: 048
     Dates: start: 20080817, end: 20080822
  13. MUCOSTA [Concomitant]
     Indication: TONSILLITIS
     Route: 048
     Dates: start: 20080817
  14. IBRUPROFEN [Concomitant]
     Indication: TONSILLITIS
     Route: 048
     Dates: end: 20080827
  15. LOXONIN [Concomitant]
     Indication: DEAFNESS
     Route: 048
     Dates: start: 20080817, end: 20080822
  16. PONTAL [Concomitant]
     Indication: TONSILLITIS
     Route: 048
     Dates: start: 20080825, end: 20080827
  17. PONTAL [Concomitant]
     Indication: DEAFNESS
     Route: 048
     Dates: start: 20080825, end: 20080827
  18. FLURBIPROFEN [Concomitant]
     Indication: TONSILLITIS
     Route: 051
     Dates: start: 20080817, end: 20080817
  19. FLURBIPROFEN [Concomitant]
     Indication: DEAFNESS
     Route: 051
     Dates: start: 20080817, end: 20080817
  20. MUCOSTA [Concomitant]
     Indication: DEAFNESS
     Route: 048
     Dates: start: 20080817
  21. METHISTA [Concomitant]
     Indication: DEAFNESS
     Route: 048
     Dates: start: 20080717, end: 20080827
  22. IBRUPROFEN [Concomitant]
     Indication: DEAFNESS
     Route: 048
     Dates: end: 20080827

REACTIONS (1)
  - ERYTHEMA NODOSUM [None]
